FAERS Safety Report 4818306-0 (Version None)
Quarter: 2005Q3

REPORT INFORMATION
  Report Type: 
  Country: None (occurrence: None)
  Receive Date: 20050929
  Receipt Date: 20050701
  Transmission Date: 20060218
  Serious: No
  Sender: FDA-Public Use
  Company Number: 05P-163-0304877-00

PATIENT
  Age: 65 Year
  Sex: Female

DRUGS (5)
  1. HUMIRA [Suspect]
     Indication: RHEUMATOID ARTHRITIS
     Dosage: 40 MG, 1 IN 2 WK, SUBCUTANEOUS
     Route: 058
     Dates: start: 20040401, end: 20050401
  2. METHOTREXATE SODIUM [Concomitant]
  3. VITAMINS [Concomitant]
  4. RALOXIFENE HYDROCHLORIDE [Concomitant]
  5. ACETAMINOPHEN [Concomitant]

REACTIONS (1)
  - VISUAL ACUITY REDUCED [None]
